FAERS Safety Report 19594632 (Version 1)
Quarter: 2021Q3

REPORT INFORMATION
  Report Type: Spontaneous
  Country: FR (occurrence: FR)
  Receive Date: 20210722
  Receipt Date: 20210722
  Transmission Date: 20211014
  Serious: Yes (Life-Threatening)
  Sender: FDA-Public Use
  Company Number: FR-TEVA-2021-FR-1934036

PATIENT
  Age: 39 Year
  Sex: Female
  Weight: 45 kg

DRUGS (3)
  1. SPASFON [PHLOROGLUCINOL] [Suspect]
     Active Substance: PHLOROGLUCINOL
     Indication: TOXICITY TO VARIOUS AGENTS
     Dosage: UNSPECIFIED
     Route: 048
  2. GABAPENTINE [Suspect]
     Active Substance: GABAPENTIN
     Indication: TOXICITY TO VARIOUS AGENTS
     Dosage: UNSPECIFIED
     Route: 048
  3. AMITRIPTYLINE [Suspect]
     Active Substance: AMITRIPTYLINE
     Indication: TOXICITY TO VARIOUS AGENTS
     Dosage: UNSPECIFIED
     Route: 048

REACTIONS (2)
  - Coma [Recovered/Resolved]
  - Pyrexia [Recovered/Resolved]

NARRATIVE: CASE EVENT DATE: 20210602
